FAERS Safety Report 13599785 (Version 1)
Quarter: 2017Q2

REPORT INFORMATION
  Report Type: Spontaneous
  Country: US (occurrence: US)
  Receive Date: 20170601
  Receipt Date: 20170601
  Transmission Date: 20170830
  Serious: Yes (Other)
  Sender: FDA-Public Use
  Company Number: US-ROCHE-1942078

PATIENT
  Age: 71 Year
  Sex: Female
  Weight: 48.58 kg

DRUGS (1)
  1. RITUXAN [Suspect]
     Active Substance: RITUXIMAB
     Indication: RHEUMATOID ARTHRITIS
     Route: 042
     Dates: start: 20161014, end: 20170224

REACTIONS (7)
  - Dizziness [Not Recovered/Not Resolved]
  - Malaise [Unknown]
  - Pulmonary fibrosis [Not Recovered/Not Resolved]
  - Syncope [Unknown]
  - Conversion disorder [Recovered/Resolved]
  - Micturition disorder [Unknown]
  - Memory impairment [Not Recovered/Not Resolved]

NARRATIVE: CASE EVENT DATE: 20170521
